FAERS Safety Report 6444344-0 (Version None)
Quarter: 2009Q4

REPORT INFORMATION
  Report Type: 
  Country: None (occurrence: None)
  Receive Date: 20091118
  Receipt Date: 20091116
  Transmission Date: 20100525
  Serious: Yes (Hospitalization, Other)
  Sender: FDA-Public Use
  Company Number: US-ELI_LILLY_AND_COMPANY-US200911004208

PATIENT
  Sex: Male

DRUGS (2)
  1. HUMULIN 70/30 [Suspect]
     Indication: DIABETES MELLITUS
     Dosage: 4 U, OTHER
  2. GLIPIZIDE [Concomitant]
     Dosage: UNK, 2/D

REACTIONS (8)
  - BLINDNESS [None]
  - BLOOD GLUCOSE INCREASED [None]
  - DRUG INEFFECTIVE [None]
  - EYE HAEMORRHAGE [None]
  - MEDICATION ERROR [None]
  - NAIL INFECTION [None]
  - NAIL INJURY [None]
  - POOR QUALITY DRUG ADMINISTERED [None]
